FAERS Safety Report 10160635 (Version 1)
Quarter: 2014Q2

REPORT INFORMATION
  Report Type: Spontaneous
  Country: ES (occurrence: ES)
  Receive Date: 20140508
  Receipt Date: 20140508
  Transmission Date: 20141212
  Serious: Yes (Other)
  Sender: FDA-Public Use
  Company Number: ES-WATSON-2014-09203

PATIENT
  Age: 72 Year
  Sex: Male

DRUGS (1)
  1. VALPROIC ACID (UNKNOWN) [Suspect]
     Indication: STATUS EPILEPTICUS
     Dosage: UNK
     Route: 065

REACTIONS (1)
  - Hyperammonaemia [Unknown]
